FAERS Safety Report 23127517 (Version 1)
Quarter: 2023Q4

REPORT INFORMATION
  Report Type: Spontaneous
  Country: JP (occurrence: JP)
  Receive Date: 20231031
  Receipt Date: 20231031
  Transmission Date: 20240110
  Serious: Yes (Other)
  Sender: FDA-Public Use
  Company Number: JP-TAKEDA-2023TJP014184

PATIENT

DRUGS (1)
  1. ZEJULA [Suspect]
     Active Substance: NIRAPARIB
     Indication: Product used for unknown indication
     Dosage: 200 MILLIGRAM
     Route: 048
     Dates: start: 20231005

REACTIONS (4)
  - Renal impairment [Unknown]
  - Pyrexia [Unknown]
  - Performance status decreased [Unknown]
  - Tumour associated fever [Unknown]

NARRATIVE: CASE EVENT DATE: 20231006
